FAERS Safety Report 7942053-X (Version None)
Quarter: 2011Q4

REPORT INFORMATION
  Report Type: 
  Country: None (occurrence: None)
  Receive Date: 20111128
  Receipt Date: 20111128
  Transmission Date: 20120403
  Serious: Yes (Other)
  Sender: FDA-Public Use
  Company Number: None

PATIENT
  Age: 60 Year
  Sex: Female
  Weight: 56.699 kg

DRUGS (1)
  1. ATELVIA [Suspect]
     Indication: OSTEOPOROSIS POSTMENOPAUSAL
     Dosage: ONE TABLET
     Route: 048
     Dates: start: 20110624, end: 20111008

REACTIONS (9)
  - INITIAL INSOMNIA [None]
  - VISION BLURRED [None]
  - MUSCULOSKELETAL STIFFNESS [None]
  - VITREOUS FLOATERS [None]
  - PHOTOPSIA [None]
  - ARTHRALGIA [None]
  - RESTLESSNESS [None]
  - VISUAL ACUITY REDUCED [None]
  - PHOTOPHOBIA [None]
